FAERS Safety Report 8330537-4 (Version None)
Quarter: 2012Q2

REPORT INFORMATION
  Report Type: 
  Country: None (occurrence: None)
  Receive Date: 20120502
  Receipt Date: 20120404
  Transmission Date: 20120825
  Serious: No
  Sender: FDA-Public Use
  Company Number: US-AMGEN-USASP2012021528

PATIENT
  Sex: Female

DRUGS (1)
  1. ENBREL [Suspect]
     Indication: RHEUMATOID ARTHRITIS
     Dosage: UNK

REACTIONS (5)
  - MOBILITY DECREASED [None]
  - ARTHRITIS [None]
  - PAIN IN EXTREMITY [None]
  - NERVOUSNESS [None]
  - OEDEMA PERIPHERAL [None]
